FAERS Safety Report 19620449 (Version 1)
Quarter: 2021Q3

REPORT INFORMATION
  Report Type: Spontaneous
  Country: US (occurrence: US)
  Receive Date: 20210727
  Receipt Date: 20210727
  Transmission Date: 20211014
  Serious: No
  Sender: FDA-Public Use
  Company Number: None

PATIENT
  Age: 69 Year
  Sex: Male
  Weight: 210 kg

DRUGS (4)
  1. APIXABAN (APIXABAN 5MG TAB) [Suspect]
     Active Substance: APIXABAN
     Indication: ATRIAL FIBRILLATION
     Route: 048
     Dates: start: 20171109, end: 20210502
  2. ASPIRIN (ASPIRIN 81MG TAB, EC) [Suspect]
     Active Substance: ASPIRIN
     Indication: SURGERY
     Route: 048
     Dates: start: 20210420, end: 20210502
  3. FERROUS FUMARATE (FERROUS FUMARATE 324MG TAB) [Suspect]
     Active Substance: FERROUS FUMARATE
  4. ASPIRIN (ASPIRIN 81MG TAB, EC) [Suspect]
     Active Substance: ASPIRIN
     Indication: THROMBOSIS PROPHYLAXIS
     Route: 048
     Dates: start: 20210420, end: 20210502

REACTIONS (2)
  - Upper gastrointestinal haemorrhage [None]
  - Chest pain [None]

NARRATIVE: CASE EVENT DATE: 20210501
